FAERS Safety Report 6043834-2 (Version None)
Quarter: 2009Q1

REPORT INFORMATION
  Report Type: 
  Country: None (occurrence: None)
  Receive Date: 20090120
  Receipt Date: 20090113
  Transmission Date: 20090719
  Serious: Yes (Death)
  Sender: FDA-Public Use
  Company Number: US-BRISTOL-MYERS SQUIBB COMPANY-14469514

PATIENT
  Age: 39 Year
  Sex: Female

DRUGS (4)
  1. ARIPIPRAZOLE [Suspect]
     Route: 048
  2. COCAINE [Suspect]
     Route: 048
  3. OLANZAPINE [Suspect]
     Route: 048
  4. QUETIAPINE [Suspect]
     Route: 048

REACTIONS (1)
  - DRUG ABUSE [None]
